FAERS Safety Report 18514109 (Version 1)
Quarter: 2020Q4

REPORT INFORMATION
  Report Type: Report from Study
  Country: US (occurrence: US)
  Receive Date: 20201118
  Receipt Date: 20201118
  Transmission Date: 20210114
  Serious: Yes (Hospitalization)
  Sender: FDA-Public Use
  Company Number: US-HORIZON-RAV-0306-2020

PATIENT
  Age: 8 Year
  Sex: Male

DRUGS (5)
  1. RAVICTI [Suspect]
     Active Substance: GLYCEROL PHENYLBUTYRATE
     Indication: CARBAMOYL PHOSPHATE SYNTHETASE DEFICIENCY
     Dosage: 4.5G TID 3 SEPARATED DOSES ; TIME INTERVAL: 0.33 D
     Route: 050
     Dates: start: 201510
  2. CHOLECALCIFEROL [Concomitant]
     Active Substance: CHOLECALCIFEROL
     Dosage: 2000UNITS DAILY
  3. MIRALAX [Suspect]
     Active Substance: POLYETHYLENE GLYCOL 3350
     Indication: CONSTIPATION
  4. FERROUS SULFATE. [Concomitant]
     Active Substance: FERROUS SULFATE
     Dosage: 220MG DAILY
  5. CITRULLINE [Concomitant]
     Active Substance: CITRULLINE

REACTIONS (21)
  - Abdominal pain [Unknown]
  - Vomiting [Unknown]
  - Encephalopathy [Unknown]
  - Nausea [Unknown]
  - Dehydration [Unknown]
  - Treatment noncompliance [Unknown]
  - Diarrhoea [Unknown]
  - Anion gap increased [Unknown]
  - Blood glucose increased [Unknown]
  - Leukopenia [Unknown]
  - Gastroenteritis [Unknown]
  - Hypokalaemia [Unknown]
  - Amino acid level increased [Unknown]
  - Ammonia increased [Recovered/Resolved]
  - Abdominal pain [Unknown]
  - Metabolic acidosis [Recovered/Resolved]
  - Abdominal pain [Unknown]
  - Dysphagia [Unknown]
  - Hyperammonaemia [Unknown]
  - Mental status changes [Recovering/Resolving]
  - Constipation [Unknown]

NARRATIVE: CASE EVENT DATE: 2020
